FAERS Safety Report 11394616 (Version 1)
Quarter: 2015Q3

REPORT INFORMATION
  Report Type: Spontaneous
  Country: IT (occurrence: IT)
  Receive Date: 20150819
  Receipt Date: 20150819
  Transmission Date: 20151125
  Serious: Yes (Hospitalization)
  Sender: FDA-Public Use
  Company Number: IT-ORION CORPORATION ORION PHARMA-ENT 2015-0977

PATIENT
  Age: 79 Year
  Sex: Female

DRUGS (9)
  1. AZILECT [Suspect]
     Active Substance: RASAGILINE MESYLATE
     Indication: PARKINSON^S DISEASE
     Route: 048
     Dates: start: 20150701, end: 20150710
  2. MANTADAN [Suspect]
     Active Substance: AMANTADINE HYDROCHLORIDE
     Indication: PARKINSON^S DISEASE
     Dosage: STRENGTH: 100 MG
     Route: 048
     Dates: start: 20150701, end: 20150710
  3. NORVASC [Concomitant]
     Active Substance: AMLODIPINE BESYLATE
     Dosage: STRENGTH: 5 MG
     Route: 065
  4. CIPROXIM [Concomitant]
     Active Substance: CIPROFLOXACIN HYDROCHLORIDE
     Route: 065
  5. COMTAN [Suspect]
     Active Substance: ENTACAPONE
     Indication: PARKINSON^S DISEASE
     Dosage: STRENGTH: 200 MG
     Route: 048
     Dates: start: 20150701, end: 20150710
  6. MIRAPEXIN [Suspect]
     Active Substance: PRAMIPEXOLE
     Indication: PARKINSON^S DISEASE
     Dosage: STRENGTH: 0.18 MG
     Route: 048
     Dates: start: 20150701, end: 20150710
  7. HALCION [Concomitant]
     Active Substance: TRIAZOLAM
     Dosage: STRENGTH: 125 MG
     Route: 065
  8. SINEMET [Suspect]
     Active Substance: CARBIDOPA\LEVODOPA
     Indication: PARKINSON^S DISEASE
     Dosage: STRENGTH: 125 MG
     Route: 048
     Dates: start: 20150701, end: 20150710
  9. CARDIOASPIRIN [Concomitant]
     Active Substance: ASPIRIN
     Dosage: STRENGTH: 100 MG
     Route: 065

REACTIONS (6)
  - Dizziness [Unknown]
  - Confusional state [Unknown]
  - Pyrexia [Unknown]
  - Electrocardiogram abnormal [Unknown]
  - Hyperthermia malignant [Unknown]
  - Vertigo [Unknown]

NARRATIVE: CASE EVENT DATE: 20150710
